FAERS Safety Report 4351144-4 (Version None)
Quarter: 2004Q2

REPORT INFORMATION
  Report Type: 
  Country: None (occurrence: None)
  Receive Date: 20040428
  Receipt Date: 20030317
  Transmission Date: 20050107
  Serious: Yes (Other)
  Sender: FDA-Public Use
  Company Number: NSADSS2003013161

PATIENT
  Age: 64 Year
  Sex: Female
  Weight: 38.5557 kg

DRUGS (1)
  1. ULTRAM [Suspect]
     Indication: ARTHRITIS
     Dosage: 50 MG, ORAL
     Route: 048
     Dates: start: 20030201

REACTIONS (1)
  - HEPATITIS [None]
